FAERS Safety Report 21508869 (Version 1)
Quarter: 2022Q4

REPORT INFORMATION
  Report Type: Spontaneous
  Country: SK (occurrence: SK)
  Receive Date: 20221026
  Receipt Date: 20221026
  Transmission Date: 20230112
  Serious: Yes (Death, Hospitalization, Other)
  Sender: FDA-Public Use
  Company Number: SK-AMGEN-SVKSP2022180532

PATIENT
  Age: 74 Year
  Sex: Male

DRUGS (3)
  1. KYPROLIS [Suspect]
     Active Substance: CARFILZOMIB
     Indication: Plasma cell myeloma
     Dosage: UNK
     Route: 065
     Dates: start: 202203
  2. LENALIDOMIDE [Concomitant]
     Active Substance: LENALIDOMIDE
     Indication: Plasma cell myeloma
     Dosage: UNK
     Route: 065
  3. DEXAMETHASONE [Concomitant]
     Active Substance: DEXAMETHASONE
     Indication: Plasma cell myeloma
     Dosage: UNK
     Route: 065

REACTIONS (14)
  - Supraventricular tachycardia [Recovering/Resolving]
  - Death [Fatal]
  - COVID-19 [Not Recovered/Not Resolved]
  - Pathological fracture [Unknown]
  - Post-acute COVID-19 syndrome [Unknown]
  - Diabetic metabolic decompensation [Unknown]
  - Pulmonary hypertension [Unknown]
  - Pericardial effusion [Unknown]
  - Diarrhoea [Unknown]
  - Dehydration [Unknown]
  - Renal failure [Unknown]
  - Normocytic anaemia [Unknown]
  - Laboratory test abnormal [Unknown]
  - Pain [Unknown]

NARRATIVE: CASE EVENT DATE: 20220101
